FAERS Safety Report 8922516 (Version 1)
Quarter: 2012Q4

REPORT INFORMATION
  Report Type: 
  Country: BR (occurrence: BR)
  Receive Date: 20121123
  Receipt Date: 20121123
  Transmission Date: 20130627
  Serious: Yes (Hospitalization)
  Sender: FDA-Public Use
  Company Number: BR-ROCHE-1159340

PATIENT
  Age: 39 Year
  Sex: Male
  Weight: 89 kg

DRUGS (1)
  1. RIVOTRIL [Suspect]
     Indication: SLEEP DISORDER THERAPY
     Dosage: 2 or 3 drops
     Route: 065
     Dates: start: 2010

REACTIONS (6)
  - Syncope [Recovered/Resolved]
  - Malaise [Unknown]
  - Nervousness [Unknown]
  - Aggression [Unknown]
  - Irritability [Unknown]
  - Swelling [Unknown]
